FAERS Safety Report 7876686-6 (Version None)
Quarter: 2011Q4

REPORT INFORMATION
  Report Type: 
  Country: None (occurrence: None)
  Receive Date: 20111031
  Receipt Date: 20111024
  Transmission Date: 20120403
  Serious: Yes (Hospitalization)
  Sender: FDA-Public Use
  Company Number: AU-MILLENNIUM PHARMACEUTICALS, INC.-2009-00911

PATIENT

DRUGS (2)
  1. VELCADE [Suspect]
     Indication: MULTIPLE MYELOMA
     Dosage: 0.7 MG, UNK
     Dates: start: 20090216, end: 20090226
  2. VELCADE [Suspect]
     Dosage: 1.75 MG, UNK
     Dates: start: 20090226

REACTIONS (2)
  - NEUROPATHY PERIPHERAL [None]
  - ATRIAL FIBRILLATION [None]
